FAERS Safety Report 19098865 (Version 2)
Quarter: 2021Q2

REPORT INFORMATION
  Report Type: Spontaneous
  Country: US (occurrence: US)
  Receive Date: 20210406
  Receipt Date: 20210615
  Transmission Date: 20210717
  Serious: No
  Sender: FDA-Public Use
  Company Number: US-ELI_LILLY_AND_COMPANY-US202104002219

PATIENT
  Sex: Female

DRUGS (1)
  1. FORTEO [Suspect]
     Active Substance: TERIPARATIDE
     Indication: OSTEOPOROSIS
     Dosage: 20 UG, UNKNOWN
     Route: 058
     Dates: start: 20210306

REACTIONS (6)
  - Abdominal discomfort [Unknown]
  - Fatigue [Recovered/Resolved]
  - Hyperparathyroidism [Unknown]
  - Product administered at inappropriate site [Unknown]
  - Headache [Recovered/Resolved]
  - Nausea [Recovered/Resolved]
